FAERS Safety Report 8130805-5 (Version None)
Quarter: 2012Q1

REPORT INFORMATION
  Report Type: 
  Country: None (occurrence: None)
  Receive Date: 20120213
  Receipt Date: 20090505
  Transmission Date: 20120608
  Serious: No
  Sender: FDA-Public Use
  Company Number: 2009BI014128

PATIENT
  Sex: Female

DRUGS (2)
  1. TYSABRI [Suspect]
     Indication: MULTIPLE SCLEROSIS
     Route: 042
     Dates: start: 20061102
  2. AVONEX [Concomitant]
     Indication: MULTIPLE SCLEROSIS
     Route: 030
     Dates: start: 20061101

REACTIONS (3)
  - LOSS OF LIBIDO [None]
  - DECREASED INTEREST [None]
  - MEMORY IMPAIRMENT [None]
